FAERS Safety Report 15038138 (Version 2)
Quarter: 2018Q3

REPORT INFORMATION
  Report Type: Spontaneous
  Country: JP (occurrence: JP)
  Receive Date: 20180620
  Receipt Date: 20180817
  Transmission Date: 20181010
  Serious: Yes (Hospitalization, Other)
  Sender: FDA-Public Use
  Company Number: PHJP2018JP012629

PATIENT
  Age: 34 Year
  Sex: Female

DRUGS (3)
  1. TAFINLAR [Suspect]
     Active Substance: DABRAFENIB MESYLATE
     Indication: MALIGNANT MELANOMA STAGE III
     Dosage: UNK
     Route: 048
     Dates: start: 201707, end: 201707
  2. NIVOLUMAB [Suspect]
     Active Substance: NIVOLUMAB
     Indication: METASTASES TO LIVER
     Dosage: UNK
     Route: 065
  3. MEKINIST [Suspect]
     Active Substance: TRAMETINIB DIMETHYL SULFOXIDE
     Indication: MALIGNANT MELANOMA STAGE III
     Dosage: UNK
     Route: 048
     Dates: start: 201707, end: 201707

REACTIONS (2)
  - Uveitis [Recovered/Resolved]
  - Erythema multiforme [Unknown]

NARRATIVE: CASE EVENT DATE: 201707
